FAERS Safety Report 7440562-3 (Version None)
Quarter: 2011Q2

REPORT INFORMATION
  Report Type: 
  Country: None (occurrence: None)
  Receive Date: 20110427
  Receipt Date: 20110422
  Transmission Date: 20111010
  Serious: Yes (Hospitalization, Congenital Anomaly)
  Sender: FDA-Public Use
  Company Number: A0924462A

PATIENT
  Sex: Male

DRUGS (2)
  1. PRENATAL VITAMINS [Concomitant]
     Route: 064
  2. PAXIL [Suspect]
     Route: 064

REACTIONS (7)
  - CARDIAC MURMUR [None]
  - DRUG EXPOSURE DURING PREGNANCY [None]
  - PULMONARY ARTERY STENOSIS CONGENITAL [None]
  - HEART DISEASE CONGENITAL [None]
  - ATRIOVENTRICULAR SEPTAL DEFECT [None]
  - SCROTAL DISORDER [None]
  - MITRAL VALVE DISEASE [None]
